FAERS Safety Report 17450688 (Version 1)
Quarter: 2020Q1

REPORT INFORMATION
  Report Type: Spontaneous
  Country: US (occurrence: US)
  Receive Date: 20200222
  Receipt Date: 20200222
  Transmission Date: 20200409
  Serious: Yes (Life-Threatening, Disabling)
  Sender: FDA-Public Use
  Company Number: None

PATIENT
  Age: 66 Year
  Sex: Female
  Weight: 101.25 kg

DRUGS (5)
  1. BELVIQ XR [Suspect]
     Active Substance: LORCASERIN HYDROCHLORIDE
     Indication: OBESITY
     Route: 048
     Dates: start: 20120801, end: 20200216
  2. GENERIC ZETIA [Concomitant]
  3. AMLODIPINE [Concomitant]
     Active Substance: AMLODIPINE BESYLATE
  4. METFORMIN [Concomitant]
     Active Substance: METFORMIN HYDROCHLORIDE
  5. LETROZOLE. [Concomitant]
     Active Substance: LETROZOLE

REACTIONS (1)
  - Breast cancer [None]

NARRATIVE: CASE EVENT DATE: 20180501
